FAERS Safety Report 6649812-4 (Version None)
Quarter: 2010Q1

REPORT INFORMATION
  Report Type: 
  Country: None (occurrence: None)
  Receive Date: 20100324
  Receipt Date: 20100305
  Transmission Date: 20100710
  Serious: No
  Sender: FDA-Public Use
  Company Number: US-TYCO HEALTHCARE/MALLINCKRODT-T201000779

PATIENT
  Sex: Female

DRUGS (1)
  1. TUSSICAPS EXTENDED-RELEASE [Suspect]
     Indication: BRONCHITIS
     Dosage: UNK

REACTIONS (2)
  - HEADACHE [None]
  - PARAESTHESIA [None]
